FAERS Safety Report 15213555 (Version 3)
Quarter: 2018Q3

REPORT INFORMATION
  Report Type: Spontaneous
  Country: US (occurrence: US)
  Receive Date: 20180730
  Receipt Date: 20180921
  Transmission Date: 20181010
  Serious: Yes (Life-Threatening, Hospitalization)
  Sender: FDA-Public Use
  Company Number: US-JNJFOC-20180723227

PATIENT
  Age: 33 Year
  Sex: Female

DRUGS (2)
  1. ACETAMINOPHEN. [Suspect]
     Active Substance: ACETAMINOPHEN
     Route: 048
  2. ACETAMINOPHEN. [Suspect]
     Active Substance: ACETAMINOPHEN
     Indication: SUICIDE ATTEMPT
     Route: 048

REACTIONS (13)
  - Suicide attempt [Unknown]
  - Renal injury [Recovered/Resolved]
  - Foetal-maternal haemorrhage [Unknown]
  - Metabolic acidosis [Recovered/Resolved]
  - Acute lung injury [Recovered/Resolved]
  - Intentional overdose [Unknown]
  - Exposure during pregnancy [Unknown]
  - Foetal heart rate deceleration abnormality [Unknown]
  - Cardiac failure congestive [Recovered/Resolved]
  - Placental insufficiency [Unknown]
  - Labour pain [Unknown]
  - Foetal death [Unknown]
  - Acute hepatic failure [Recovered/Resolved]
